FAERS Safety Report 25206989 (Version 1)
Quarter: 2025Q2

REPORT INFORMATION
  Report Type: Spontaneous
  Country: HU (occurrence: HU)
  Receive Date: 20250417
  Receipt Date: 20250417
  Transmission Date: 20250716
  Serious: Yes (Other)
  Sender: ROCHE
  Company Number: HU-ROCHE-10000258165

PATIENT

DRUGS (1)
  1. RITUXIMAB [Suspect]
     Active Substance: RITUXIMAB
     Indication: Product used for unknown indication
     Route: 065

REACTIONS (10)
  - Hypersensitivity [Unknown]
  - Renal injury [Unknown]
  - Cardiac disorder [Unknown]
  - Cognitive disorder [Unknown]
  - Disturbance in attention [Unknown]
  - Hypertension [Unknown]
  - Tachycardia [Unknown]
  - Fatigue [Unknown]
  - Pyrexia [Unknown]
  - Memory impairment [Unknown]
